FAERS Safety Report 9643954 (Version 1)
Quarter: 2013Q4

REPORT INFORMATION
  Report Type: Spontaneous
  Country: AU (occurrence: None)
  Receive Date: 20131023
  Receipt Date: 20131023
  Transmission Date: 20140711
  Serious: Yes (Other)
  Sender: FDA-Public Use
  Company Number: ENTC2013-0384

PATIENT
  Sex: Female

DRUGS (3)
  1. STAVELO (LEVODOPA, CARBIDOPA, ENTACAPONE) [Suspect]
  2. ARICEPT [Concomitant]
  3. SITRIOL [Concomitant]

REACTIONS (1)
  - Rhabdomyolysis [None]
